FAERS Safety Report 19964911 (Version 3)
Quarter: 2022Q3

REPORT INFORMATION
  Report Type: Spontaneous
  Country: JP (occurrence: JP)
  Receive Date: 20211018
  Receipt Date: 20220907
  Transmission Date: 20221027
  Serious: Yes (Death, Hospitalization)
  Sender: FDA-Public Use
  Company Number: JP-DSJP-DSJ-2021-130242

PATIENT
  Age: 69 Year
  Sex: Female
  Weight: 43 kg

DRUGS (4)
  1. ENHERTU [Suspect]
     Active Substance: FAM-TRASTUZUMAB DERUXTECAN-NXKI
     Indication: HER2 positive gastric cancer
     Dosage: 3.1 MG/KG, ONCE EVERY 3 WK
     Route: 041
     Dates: start: 20210826, end: 20210826
  2. ENHERTU [Suspect]
     Active Substance: FAM-TRASTUZUMAB DERUXTECAN-NXKI
     Dosage: 3.7 MG/KG, ONCE EVERY 3 WK
     Route: 041
     Dates: start: 20210916, end: 20210916
  3. ENHERTU [Suspect]
     Active Substance: FAM-TRASTUZUMAB DERUXTECAN-NXKI
     Dosage: 4.4 MG/KG, ONCE EVERY 3 WK
     Route: 041
     Dates: start: 20211026, end: 20211026
  4. ENHERTU [Suspect]
     Active Substance: FAM-TRASTUZUMAB DERUXTECAN-NXKI
     Dosage: 3.8 MG/KG, ONCE EVERY 3 WK
     Route: 041
     Dates: start: 20211125, end: 20211125

REACTIONS (3)
  - Femoral neck fracture [Recovering/Resolving]
  - Disease progression [Fatal]
  - Prescribed underdose [Unknown]

NARRATIVE: CASE EVENT DATE: 20210826
